FAERS Safety Report 18546462 (Version 1)
Quarter: 2020Q4

REPORT INFORMATION
  Report Type: Spontaneous
  Country: JP (occurrence: JP)
  Receive Date: 20201125
  Receipt Date: 20201125
  Transmission Date: 20210114
  Serious: Yes (Death)
  Sender: FDA-Public Use
  Company Number: JP-JNJFOC-20200918279

PATIENT
  Age: 81 Year
  Sex: Male
  Weight: 49.3 kg

DRUGS (9)
  1. MAINTATE [Concomitant]
     Active Substance: BISOPROLOL FUMARATE
     Indication: ATRIAL FIBRILLATION
     Dosage: DAILY DOSE 2.5 MG
     Route: 048
  2. DONEPEZIL HYDROCHLORIDE. [Concomitant]
     Active Substance: DONEPEZIL HYDROCHLORIDE
     Indication: DEMENTIA
     Dosage: DAILY DOSE 5 MG
     Route: 048
  3. VALACICLOVIR [Concomitant]
     Active Substance: VALACYCLOVIR HYDROCHLORIDE
     Indication: HERPES ZOSTER
     Dosage: DAILY DOSE 3000 MG
     Route: 048
     Dates: start: 20200714
  4. XARELTO [Suspect]
     Active Substance: RIVAROXABAN
     Indication: ATRIAL FIBRILLATION
     Dosage: 10 MG, QD
     Route: 048
     Dates: start: 20160908
  5. VIDARABINE [Concomitant]
     Active Substance: VIDARABINE
     Indication: HERPES ZOSTER
     Dosage: UNK
     Dates: start: 20200714
  6. LASIX [Concomitant]
     Active Substance: FUROSEMIDE
     Indication: CARDIAC FAILURE CHRONIC
     Dosage: DAILY DOSE 10 MG
     Route: 048
  7. DIART [Concomitant]
     Active Substance: AZOSEMIDE
     Indication: CARDIAC FAILURE CHRONIC
     Dosage: DAILY DOSE 90 MG
     Route: 048
  8. EPLERENONE. [Concomitant]
     Active Substance: EPLERENONE
     Indication: CARDIAC FAILURE CHRONIC
     Dosage: DAILY DOSE 100 MG
     Route: 048
  9. PIMOBENDAN [Concomitant]
     Active Substance: PIMOBENDAN
     Indication: CARDIAC FAILURE CHRONIC
     Dosage: DAILY DOSE 2.5 MG
     Route: 048

REACTIONS (5)
  - Dysphagia [Unknown]
  - Pneumonia aspiration [Fatal]
  - Gastric ulcer haemorrhage [Fatal]
  - Herpes zoster [Unknown]
  - Eating disorder [Unknown]

NARRATIVE: CASE EVENT DATE: 20200713
